FAERS Safety Report 4881908-X (Version None)
Quarter: 2006Q1

REPORT INFORMATION
  Report Type: 
  Country: None (occurrence: None)
  Receive Date: 20060112
  Receipt Date: 20051230
  Transmission Date: 20060701
  Serious: Yes (Hospitalization)
  Sender: FDA-Public Use
  Company Number: 220656

PATIENT
  Age: 65 Year
  Sex: Male
  Weight: 82.5 kg

DRUGS (6)
  1. AVASTIN [Suspect]
     Indication: TRANSITIONAL CELL CARCINOMA
     Dosage: 15MG/KG, Q3W; INTRAVENOUS
     Route: 042
     Dates: start: 20050421, end: 20050929
  2. RADIATION (RADIATION THERAPY) [Suspect]
     Indication: TRANSITIONAL CELL CARCINOMA
     Dates: start: 20051117, end: 20051201
  3. STEROIDS NOS (STEROID NOS) [Suspect]
     Indication: DRUG USE FOR UNKNOWN INDICATION
  4. NSAID (NON-STEROIDAL ANTI-INFLAMMATORY DRUG NOS) [Suspect]
     Indication: DRUG USE FOR UNKNOWN INDICATION
  5. PACLITAXEL [Concomitant]
  6. CARBOPLATIN [Concomitant]

REACTIONS (2)
  - ILEUS [None]
  - INTESTINAL PERFORATION [None]
